FAERS Safety Report 7340729-9 (Version None)
Quarter: 2011Q1

REPORT INFORMATION
  Report Type: 
  Country: None (occurrence: None)
  Receive Date: 20110309
  Receipt Date: 20110303
  Transmission Date: 20110831
  Serious: Yes (Other)
  Sender: FDA-Public Use
  Company Number: EG-ROCHE-763405

PATIENT
  Sex: Female
  Weight: 88 kg

DRUGS (2)
  1. TOCILIZUMAB [Suspect]
     Route: 042
     Dates: start: 20100417, end: 20100918
  2. METHOTREXATE [Suspect]
     Dosage: FREQUENCY: ONCE
     Route: 030
     Dates: start: 20100417

REACTIONS (1)
  - GOUT [None]
